FAERS Safety Report 5789305-X (Version None)
Quarter: 2008Q2

REPORT INFORMATION
  Report Type: 
  Country: None (occurrence: None)
  Receive Date: 20080626
  Receipt Date: 20080617
  Transmission Date: 20081010
  Serious: Yes (Hospitalization)
  Sender: FDA-Public Use
  Company Number: US-MERCK-0706USA02155

PATIENT
  Age: 71 Year
  Sex: Female
  Weight: 77 kg

DRUGS (4)
  1. FOSAMAX [Suspect]
     Indication: OSTEOPENIA
     Route: 048
     Dates: start: 20030101
  2. FOSAMAX [Suspect]
     Route: 048
     Dates: start: 20060524, end: 20060701
  3. FOSAMAX [Suspect]
     Indication: OSTEOPOROSIS
     Route: 048
     Dates: start: 20030101
  4. FOSAMAX [Suspect]
     Route: 048
     Dates: start: 20060524, end: 20060701

REACTIONS (8)
  - ANAEMIA [None]
  - BLOOD CHOLESTEROL INCREASED [None]
  - DEPRESSION [None]
  - EXOSTOSIS [None]
  - GASTROOESOPHAGEAL REFLUX DISEASE [None]
  - HYPERPARATHYROIDISM [None]
  - OSTEOARTHROPATHY [None]
  - TEMPOROMANDIBULAR JOINT SYNDROME [None]
